FAERS Safety Report 7509202-9 (Version None)
Quarter: 2011Q2

REPORT INFORMATION
  Report Type: 
  Country: None (occurrence: None)
  Receive Date: 20110527
  Receipt Date: 20110516
  Transmission Date: 20111010
  Serious: Yes (Other)
  Sender: FDA-Public Use
  Company Number: CA-JNJFOC-20110506705

PATIENT
  Age: 67 Year
  Sex: Female

DRUGS (4)
  1. INVEGA [Suspect]
     Indication: PRODUCT USED FOR UNKNOWN INDICATION
     Route: 048
     Dates: start: 20110515
  2. SEROQUEL XR [Interacting]
     Indication: PRODUCT USED FOR UNKNOWN INDICATION
     Route: 065
     Dates: end: 20110504
  3. INVEGA [Suspect]
     Route: 048
     Dates: start: 20110512, end: 20110514
  4. INVEGA [Suspect]
     Route: 048
     Dates: start: 20110505, end: 20110511

REACTIONS (5)
  - DRUG INTERACTION [None]
  - SYNCOPE [None]
  - LETHARGY [None]
  - HYPERSOMNIA [None]
  - PSYCHOTIC DISORDER [None]
